FAERS Safety Report 21223604 (Version 2)
Quarter: 2022Q3

REPORT INFORMATION
  Report Type: Spontaneous
  Country: GB (occurrence: GB)
  Receive Date: 20220817
  Receipt Date: 20220922
  Transmission Date: 20221027
  Serious: Yes (Other)
  Sender: FDA-Public Use
  Company Number: GB-MYLANLABS-2022M1086374

PATIENT
  Sex: Male
  Weight: 84.8 kg

DRUGS (1)
  1. CLOZARIL [Suspect]
     Active Substance: CLOZAPINE
     Indication: Schizophrenia
     Dosage: UNK
     Route: 048
     Dates: start: 20040709

REACTIONS (4)
  - Electrocardiogram QT prolonged [Recovering/Resolving]
  - Malaise [Recovering/Resolving]
  - Blood triglycerides increased [Recovering/Resolving]
  - Weight increased [Recovering/Resolving]
